FAERS Safety Report 12968617 (Version 3)
Quarter: 2016Q4

REPORT INFORMATION
  Report Type: Spontaneous
  Country: US (occurrence: US)
  Receive Date: 20161123
  Receipt Date: 20161221
  Transmission Date: 20170207
  Serious: Yes (Other)
  Sender: FDA-Public Use
  Company Number: US-LUNDBECK-DKLU2022136

PATIENT
  Age: 87 Year
  Sex: Male
  Weight: 78 kg

DRUGS (2)
  1. NORTHERA [Suspect]
     Active Substance: DROXIDOPA
     Indication: ORTHOSTATIC HYPOTENSION
     Dosage: TITRATION COMPLETE
     Route: 065
     Dates: start: 20161022
  2. CARBIDOPA/LEVODOPA [Concomitant]
     Active Substance: CARBIDOPA\LEVODOPA
     Indication: PARKINSON^S DISEASE
     Dosage: 25-100MG
     Route: 065

REACTIONS (7)
  - Seizure like phenomena [Unknown]
  - Confusional state [Unknown]
  - Dyskinesia [Unknown]
  - Dysstasia [Unknown]
  - Blood pressure increased [Unknown]
  - Condition aggravated [Unknown]
  - Hypotension [Unknown]

NARRATIVE: CASE EVENT DATE: 20161031
